FAERS Safety Report 8574954-6 (Version None)
Quarter: 2012Q2

REPORT INFORMATION
  Report Type: 
  Country: None (occurrence: None)
  Receive Date: 20120423
  Receipt Date: 20100303
  Transmission Date: 20120825
  Serious: Yes (Other)
  Sender: FDA-Public Use
  Company Number: PHEH2009US15167

PATIENT
  Age: 87 Year
  Sex: Female
  Weight: 54.9 kg

DRUGS (16)
  1. LASIX [Concomitant]
  2. CEPHALEXIN [Concomitant]
  3. COZAAR [Concomitant]
  4. ANALGESICS (NO INGREDIENTS/SUBSTANCES) [Concomitant]
  5. LOPID [Concomitant]
  6. AMBIEN [Concomitant]
  7. DIGOXIN [Concomitant]
  8. EXJADE [Suspect]
     Indication: IRON OVERLOAD
     Dosage: 500 MG, DAILY, ORAL
     Route: 048
     Dates: start: 20091016, end: 20100211
  9. EXJADE [Suspect]
     Indication: ANAEMIA OF CHRONIC DISEASE
     Dosage: 500 MG, DAILY, ORAL
     Route: 048
     Dates: start: 20091016, end: 20100211
  10. ASPIRIN [Concomitant]
  11. CARAFATE [Concomitant]
  12. PRILOSEC [Concomitant]
  13. LEVOXYL [Concomitant]
  14. CALCIUM CARBONATE [Concomitant]
  15. ACE INHIBITOR NOS (NO INGREDIENTS/SUBSTANCES) [Concomitant]
  16. REGLAN [Concomitant]

REACTIONS (7)
  - HAEMOGLOBIN INCREASED [None]
  - BLOOD CREATININE INCREASED [None]
  - DYSGEUSIA [None]
  - RENAL FAILURE [None]
  - WEIGHT INCREASED [None]
  - SERUM FERRITIN INCREASED [None]
  - HAEMOGLOBIN DECREASED [None]
